FAERS Safety Report 23440674 (Version 1)
Quarter: 2024Q1

REPORT INFORMATION
  Report Type: Spontaneous
  Country: FR (occurrence: FR)
  Receive Date: 20240125
  Receipt Date: 20240125
  Transmission Date: 20240410
  Serious: Yes (Congenital Anomaly)
  Sender: FDA-Public Use
  Company Number: FR-SA-2024SA022641

PATIENT
  Sex: Female

DRUGS (2)
  1. VALPROATE SODIUM [Suspect]
     Active Substance: VALPROATE SODIUM
     Indication: Product used for unknown indication
     Dosage: UNK, STRENGTH: 500 MG TABLET
     Route: 064
  2. FOLIC ACID [Concomitant]
     Active Substance: FOLIC ACID
     Indication: Product used for unknown indication
     Dosage: UNK
     Route: 064

REACTIONS (32)
  - Ear, nose and throat disorder [Unknown]
  - Foetal exposure during pregnancy [Unknown]
  - Hypersensitivity [Unknown]
  - Affect lability [Unknown]
  - Adenoidal hypertrophy [Unknown]
  - Disturbance in social behaviour [Unknown]
  - Fine motor skill dysfunction [Unknown]
  - Reading disorder [Unknown]
  - Dyslexia [Unknown]
  - Speech disorder developmental [Unknown]
  - Anxiety [Unknown]
  - Foetal heart rate abnormal [Unknown]
  - Heterophoria [Unknown]
  - Stress [Unknown]
  - Gastrointestinal disorder [Unknown]
  - Fatigue [Unknown]
  - Behaviour disorder [Unknown]
  - Speech sound disorder [Unknown]
  - Attention deficit hyperactivity disorder [Unknown]
  - Memory impairment [Unknown]
  - Disinhibition [Unknown]
  - Crying [Unknown]
  - Disorientation [Unknown]
  - Personal relationship issue [Unknown]
  - Dysgraphia [Unknown]
  - Language disorder [Unknown]
  - Disturbance in attention [Unknown]
  - Sleep disorder [Unknown]
  - Obsessive-compulsive disorder [Unknown]
  - Auditory disorder [Unknown]
  - Rash [Unknown]
  - Dysarthria [Unknown]
